FAERS Safety Report 9595312 (Version 1)
Quarter: 2013Q4

REPORT INFORMATION
  Report Type: Spontaneous
  Country: US (occurrence: US)
  Receive Date: 20131004
  Receipt Date: 20131004
  Transmission Date: 20140711
  Serious: No
  Sender: FDA-Public Use
  Company Number: US-PFIZER INC-2013281845

PATIENT
  Age: 70 Year
  Sex: Male

DRUGS (2)
  1. ADVIL [Suspect]
     Dosage: UNK
  2. BABY ASPIRIN [Suspect]
     Dosage: UNK

REACTIONS (2)
  - Tinnitus [Unknown]
  - Epistaxis [Unknown]
